FAERS Safety Report 17948287 (Version 1)
Quarter: 2020Q2

REPORT INFORMATION
  Report Type: Spontaneous
  Country: US (occurrence: US)
  Receive Date: 20200626
  Receipt Date: 20200626
  Transmission Date: 20200714
  Serious: No
  Sender: FDA-Public Use
  Company Number: None

PATIENT
  Age: 41 Year
  Sex: Female

DRUGS (2)
  1. DESOGEN [Concomitant]
     Active Substance: DESOGESTREL\ETHINYL ESTRADIOL
  2. ESTRADIOL 2MG MYLAN [Suspect]
     Active Substance: ESTRADIOL
     Indication: INFERTILITY
     Route: 048
     Dates: start: 20200620

REACTIONS (1)
  - Mastitis [None]

NARRATIVE: CASE EVENT DATE: 20200620
